FAERS Safety Report 4289184-6 (Version None)
Quarter: 2004Q1

REPORT INFORMATION
  Report Type: 
  Country: None (occurrence: None)
  Receive Date: 20040206
  Receipt Date: 20040128
  Transmission Date: 20041129
  Serious: Yes (Other)
  Sender: FDA-Public Use
  Company Number: 2004005976

PATIENT
  Age: 28 Year
  Sex: Male

DRUGS (1)
  1. VFEND [Suspect]
     Indication: BRONCHOPULMONARY ASPERGILLOSIS
     Dosage: INTRAVENOUS
     Route: 042

REACTIONS (3)
  - ACUTE PULMONARY OEDEMA [None]
  - DIALYSIS [None]
  - RENAL FAILURE ACUTE [None]
